FAERS Safety Report 20815149 (Version 2)
Quarter: 2022Q3

REPORT INFORMATION
  Report Type: Report from Study
  Country: GB (occurrence: GB)
  Receive Date: 20220511
  Receipt Date: 20220913
  Transmission Date: 20221027
  Serious: Yes (Death, Other)
  Sender: FDA-Public Use
  Company Number: GB-BRISTOL-MYERS SQUIBB COMPANY-2022-038237

PATIENT
  Age: 79 Year
  Sex: Male

DRUGS (5)
  1. POMALYST [Suspect]
     Active Substance: POMALIDOMIDE
     Indication: Plasma cell myeloma refractory
     Route: 048
     Dates: start: 20190318, end: 20190407
  2. DEXAMETHASONE [Suspect]
     Active Substance: DEXAMETHASONE
     Indication: Plasma cell myeloma
     Dosage: FREQUENCY TEXT: 1,8,15,22 DAYS?20 MILLIGRAM
     Route: 048
     Dates: start: 20190318
  3. DEXAMETHASONE [Suspect]
     Active Substance: DEXAMETHASONE
     Dosage: FREQUENCY TEXT: 1,8,15,22 DAYS?20 MILLIGRAM
     Route: 048
     Dates: start: 20190325
  4. DEXAMETHASONE [Suspect]
     Active Substance: DEXAMETHASONE
     Dosage: FREQUENCY TEXT: 1,8,15,22 DAYS?20 MILLIGRAM
     Route: 048
     Dates: start: 20190401
  5. DEXAMETHASONE [Suspect]
     Active Substance: DEXAMETHASONE
     Dosage: FREQUENCY TEXT: DAYS 1, 8, 15, 22?20 MILLIGRAM
     Route: 048
     Dates: start: 20190408

REACTIONS (4)
  - Death [Fatal]
  - Anaemia [Unknown]
  - Constipation [Unknown]
  - Fatigue [Unknown]

NARRATIVE: CASE EVENT DATE: 20190401
